FAERS Safety Report 9734664 (Version 5)
Quarter: 2014Q2

REPORT INFORMATION
  Report Type: Spontaneous
  Country: US (occurrence: US)
  Receive Date: 20131206
  Receipt Date: 20140522
  Transmission Date: 20141212
  Serious: Yes (Hospitalization, Other)
  Sender: FDA-Public Use
  Company Number: US-JNJFOC-20131116488

PATIENT
  Sex: Female
  Weight: 74.84 kg

DRUGS (9)
  1. EXTRA STRENGTH TYLENOL [Suspect]
     Route: 048
  2. EXTRA STRENGTH TYLENOL [Suspect]
     Indication: ARTHRALGIA
     Route: 048
     Dates: start: 20111116, end: 20111126
  3. IBUPROFEN [Concomitant]
     Indication: PYREXIA
     Route: 065
  4. TYLENOL PM [Concomitant]
     Indication: PRODUCT USED FOR UNKNOWN INDICATION
     Route: 048
  5. CELEXA [Concomitant]
     Indication: ANXIETY
     Dosage: EVERY MORNING
     Route: 065
     Dates: start: 2004
  6. KLONOPIN [Concomitant]
     Indication: ANXIETY
     Dosage: AS NECESSARY
     Route: 065
     Dates: start: 2004
  7. MELOXICAM [Concomitant]
     Indication: PRODUCT USED FOR UNKNOWN INDICATION
     Route: 065
  8. NITROFURANTOIN [Concomitant]
     Indication: URINARY TRACT INFECTION
     Route: 065
  9. ARIMIDEX [Concomitant]
     Indication: BREAST CANCER
     Route: 065
     Dates: start: 201104

REACTIONS (4)
  - Hepatitis [Recovering/Resolving]
  - Acute hepatic failure [Recovering/Resolving]
  - Thrombocytopenia [Recovered/Resolved]
  - Accidental overdose [Unknown]
